FAERS Safety Report 4465329-X (Version None)
Quarter: 2004Q4

REPORT INFORMATION
  Report Type: 
  Country: None (occurrence: None)
  Receive Date: 20041004
  Receipt Date: 20040922
  Transmission Date: 20050328
  Serious: Yes (Death)
  Sender: FDA-Public Use
  Company Number: US-MERCK-0409USA01894

PATIENT
  Sex: Female

DRUGS (2)
  1. ENBREL [Concomitant]
     Route: 065
  2. VIOXX [Suspect]
     Route: 048

REACTIONS (1)
  - CEREBRAL HAEMORRHAGE [None]
